FAERS Safety Report 18005908 (Version 1)
Quarter: 2020Q3

REPORT INFORMATION
  Report Type: Spontaneous
  Country: CH (occurrence: CH)
  Receive Date: 20200710
  Receipt Date: 20200710
  Transmission Date: 20201103
  Serious: Yes (Hospitalization)
  Sender: FDA-Public Use
  Company Number: CH-ROCHE-2638559

PATIENT
  Age: 79 Year
  Sex: Female

DRUGS (11)
  1. ACIDUM FOLICUM STREULI [Concomitant]
     Active Substance: FOLIC ACID
     Route: 048
  2. ALDACTONE [Concomitant]
     Active Substance: SPIRONOLACTONE
     Route: 048
  3. CARBOPLATIN. [Concomitant]
     Active Substance: CARBOPLATIN
     Dosage: CYCLICAL
     Route: 041
     Dates: start: 20200304, end: 20200405
  4. ALIMTA [Concomitant]
     Active Substance: PEMETREXED DISODIUM
     Dosage: CYCLICAL
     Route: 041
     Dates: start: 20200406
  5. CARBOPLATIN. [Concomitant]
     Active Substance: CARBOPLATIN
     Dosage: CYCLICAL
     Route: 041
     Dates: start: 20200406
  6. ALIMTA [Concomitant]
     Active Substance: PEMETREXED DISODIUM
     Dosage: CYCLICAL
     Route: 041
     Dates: start: 20200304, end: 20200405
  7. TECENTRIQ [Suspect]
     Active Substance: ATEZOLIZUMAB
     Indication: IMMUNOCHEMOTHERAPY
     Dosage: CYCLICAL
     Route: 041
     Dates: start: 20200304
  8. AVASTIN [Concomitant]
     Active Substance: BEVACIZUMAB
     Route: 065
     Dates: start: 20200304, end: 20200304
  9. PANTOZOL [Concomitant]
     Active Substance: PANTOPRAZOLE SODIUM
     Route: 048
  10. CALCIUM D3 SANDOZ [Concomitant]
     Active Substance: CALCIUM\CHOLECALCIFEROL
     Route: 048
  11. NEBILET [Concomitant]
     Active Substance: NEBIVOLOL
     Route: 048

REACTIONS (6)
  - Bicytopenia [Recovering/Resolving]
  - Myositis [Recovered/Resolved]
  - Liver injury [Recovered/Resolved]
  - Vitiligo [Unknown]
  - Pyrexia [Recovered/Resolved]
  - Tubulointerstitial nephritis [Recovered/Resolved]

NARRATIVE: CASE EVENT DATE: 20200423
